FAERS Safety Report 4679334-1 (Version None)
Quarter: 2005Q2

REPORT INFORMATION
  Report Type: 
  Country: None (occurrence: None)
  Receive Date: 20050602
  Receipt Date: 20050524
  Transmission Date: 20051028
  Serious: Yes (Hospitalization)
  Sender: FDA-Public Use
  Company Number: US-JNJFOC-20050506691

PATIENT
  Sex: Female
  Weight: 88.45 kg

DRUGS (2)
  1. DURAGESIC-100 [Suspect]
     Route: 062
  2. MORPHINE [Concomitant]
     Indication: PAIN
     Route: 049

REACTIONS (1)
  - LUNG INFECTION [None]
